FAERS Safety Report 23363471 (Version 2)
Quarter: 2024Q4

REPORT INFORMATION
  Report Type: Spontaneous
  Country: US (occurrence: US)
  Receive Date: 20240103
  Receipt Date: 20241106
  Transmission Date: 20250115
  Serious: Yes (Hospitalization, Other)
  Sender: FRESENIUS KABI
  Company Number: US-FreseniusKabi-FK202321252

PATIENT
  Age: 72 Year
  Sex: Male
  Weight: 64.5 kg

DRUGS (14)
  1. MESNA [Suspect]
     Active Substance: MESNA
     Indication: B-cell type acute leukaemia
     Dosage: 300 MG/M2 CYCLIC (300 MG/M2, CYCLE 1,3,5,7, DAYS 1-3)
  2. VINCRISTINE SULFATE [Suspect]
     Active Substance: VINCRISTINE SULFATE
     Indication: B-cell type acute leukaemia
     Dosage: 2 MG CYCLIC (2 MG, CYCLE 1,3,5,7, DAY 1, DAY 8)
     Route: 042
     Dates: start: 20230923
  3. VINCRISTINE SULFATE [Suspect]
     Active Substance: VINCRISTINE SULFATE
     Dosage: 2 MG, CYCLE 1,3,5,7, DAY 1, DAY 8
     Route: 042
     Dates: start: 20230929, end: 20231006
  4. DOXORUBICIN HYDROCHLORIDE [Suspect]
     Active Substance: DOXORUBICIN HYDROCHLORIDE
     Indication: B-cell type acute leukaemia
     Dosage: 37.5 MG/M2, CYCLE 1,3,5,7, DAY 4)
     Route: 042
  5. METHOTREXATE SODIUM [Suspect]
     Active Substance: METHOTREXATE SODIUM
     Indication: B-cell type acute leukaemia
     Dosage: 500 MG/M2 CYCLIC (500 MG/M2, CYCLE 2,4,6,8, DAY 1)
     Route: 042
  6. METHOTREXATE SODIUM [Suspect]
     Active Substance: METHOTREXATE SODIUM
     Dosage: 12 MG CYCLIC (12 MG, CYCLE 1-4, DAY 2, DAY 8)
     Route: 042
  7. CYTARABINE [Suspect]
     Active Substance: CYTARABINE
     Indication: B-cell type acute leukaemia
     Dosage: 1 G/M2/DOSE, CYCLE 2,4,6,8, EVERY 12 HRS X4, DAYS 2,3)
     Route: 042
  8. CYTARABINE [Suspect]
     Active Substance: CYTARABINE
     Dosage: 100 MG CYCLIC (100 MG, CYCLE 1-4, DAY2, DAY 8)
     Route: 042
  9. METHYLPREDNISOLONE SODIUM SUCCINATE [Suspect]
     Active Substance: METHYLPREDNISOLONE SODIUM SUCCINATE
     Indication: B-cell type acute leukaemia
     Dosage: 50 MG CYCLIC (50 MG, CYCLE 2,4,6,8, EVERY 12 HRS X 6 DOSES, DAYS 1-3)?FROM NDA 11-757 TO NDA 11-856
     Route: 042
  10. RITUXIMAB [Suspect]
     Active Substance: RITUXIMAB
     Indication: B-cell type acute leukaemia
     Dosage: 375 MG/M2 CYCLIC (375 MG/M2, CYCLE 1-4, DAY 1, DAY 8)
     Route: 042
  11. DEXAMETHASONE [Suspect]
     Active Substance: DEXAMETHASONE
     Indication: B-cell type acute leukaemia
     Dosage: 20 MG CYCLIC (20 MG IV OR PO, CYCLE 1,3,5,7, DAYS 1-4, DAYS 11-14)
     Dates: start: 20230923
  12. DEXAMETHASONE [Suspect]
     Active Substance: DEXAMETHASONE
     Dosage: 20 MG CYCLIC (20 MG IV OR PO, CYCLE 1,3,5,7, DAYS 1-4, DAYS 11-14)
     Dates: start: 20230929, end: 20231012
  13. CYCLOPHOSPHAMIDE [Suspect]
     Active Substance: CYCLOPHOSPHAMIDE
     Indication: B-cell type acute leukaemia
     Dosage: 250 MG/M2 CYCLIC (250 MG/M2, CYCLE 1,3,5,7, EVERY 12 HRS X 6 DOSES, DAYS 1-3)
     Route: 042
     Dates: start: 20230923
  14. CYCLOPHOSPHAMIDE [Suspect]
     Active Substance: CYCLOPHOSPHAMIDE
     Dosage: 250 MG CYCLIC (250 MG IV OR PO, CYCLE 1,3,5,7, EVERY 12 HOURS X6 DOSES, DAYS 1-3)
     Route: 042
     Dates: start: 20230929, end: 20231001

REACTIONS (9)
  - Fall [Recovering/Resolving]
  - Tachypnoea [Recovering/Resolving]
  - Confusional state [Recovered/Resolved]
  - Pneumonia [Recovering/Resolving]
  - Condition aggravated [Recovering/Resolving]
  - Dyspnoea [Recovering/Resolving]
  - Condition aggravated [Recovering/Resolving]
  - Pleural effusion [Recovering/Resolving]
  - Contusion [Unknown]

NARRATIVE: CASE EVENT DATE: 20231103
